FAERS Safety Report 21289443 (Version 2)
Quarter: 2022Q3

REPORT INFORMATION
  Report Type: Spontaneous
  Country: FR (occurrence: FR)
  Receive Date: 20220902
  Receipt Date: 20220908
  Transmission Date: 20221026
  Serious: Yes (Other)
  Sender: FDA-Public Use
  Company Number: FR-NOVARTISPH-PHHY2014FR149702

PATIENT
  Age: 34 Year
  Sex: Male
  Weight: 87 kg

DRUGS (6)
  1. NEORAL [Suspect]
     Active Substance: CYCLOSPORINE
     Indication: Aplastic anaemia
     Dosage: 500 MG, DAILY
     Route: 048
     Dates: start: 20140627
  2. NEORAL [Suspect]
     Active Substance: CYCLOSPORINE
     Dosage: UNK (DOSE REDUCED)
     Route: 048
     Dates: start: 20140929
  3. ATGAM [Suspect]
     Active Substance: EQUINE THYMOCYTE IMMUNE GLOBULIN
     Indication: Aplastic anaemia
     Dosage: 40 MG/KG, DAILY
     Route: 042
     Dates: start: 20140627, end: 20140630
  4. SOLU-MEDROL [Suspect]
     Active Substance: METHYLPREDNISOLONE SODIUM SUCCINATE
     Indication: Aplastic anaemia
     Dosage: 170 MG, DAILY
     Route: 042
     Dates: start: 20140626, end: 20140627
  5. SOLU-MEDROL [Suspect]
     Active Substance: METHYLPREDNISOLONE SODIUM SUCCINATE
     Dosage: 85 MG, QD (85 MG, DAILY)
     Route: 042
     Dates: start: 20140628, end: 20140707
  6. SOLU-MEDROL [Suspect]
     Active Substance: METHYLPREDNISOLONE SODIUM SUCCINATE
     Dosage: UNK
     Route: 042
     Dates: start: 20140708, end: 20140726

REACTIONS (6)
  - Steroid diabetes [Not Recovered/Not Resolved]
  - Renal impairment [Not Recovered/Not Resolved]
  - Gingival hypertrophy [Not Recovered/Not Resolved]
  - Bacillus infection [Recovered/Resolved]
  - Hypertrichosis [Not Recovered/Not Resolved]
  - Acne [Not Recovered/Not Resolved]

NARRATIVE: CASE EVENT DATE: 20140701
